FAERS Safety Report 21968552 (Version 1)
Quarter: 2023Q1

REPORT INFORMATION
  Report Type: Spontaneous
  Country: US (occurrence: None)
  Receive Date: 20230207
  Receipt Date: 20230207
  Transmission Date: 20230417
  Serious: Yes (Other)
  Sender: FDA-Public Use
  Company Number: None

PATIENT
  Age: 20 Year
  Sex: Female
  Weight: 49 kg

DRUGS (2)
  1. CEFTAROLINE [Suspect]
     Active Substance: CEFTAROLINE
     Indication: Endocarditis staphylococcal
     Dosage: FREQUENCY : 3 TIMES A DAY;?
     Route: 042
     Dates: start: 20230109, end: 20230126
  2. DAPTOMYCIN [Concomitant]
     Active Substance: DAPTOMYCIN
     Dates: start: 20230109, end: 20230117

REACTIONS (4)
  - White blood cell count decreased [None]
  - Neutrophil count decreased [None]
  - Platelet count decreased [None]
  - Therapy cessation [None]

NARRATIVE: CASE EVENT DATE: 20230126
